FAERS Safety Report 5706330-5 (Version None)
Quarter: 2008Q2

REPORT INFORMATION
  Report Type: 
  Country: None (occurrence: None)
  Receive Date: 20080411
  Receipt Date: 20040328
  Transmission Date: 20081010
  Serious: Yes (Other)
  Sender: FDA-Public Use
  Company Number: DSA_31676_2008

PATIENT
  Sex: Male

DRUGS (1)
  1. LORAZEPAM [Suspect]
     Indication: GENERALISED ANXIETY DISORDER
     Dosage: (DF, ORAL)
     Route: 048

REACTIONS (5)
  - DRUG DEPENDENCE [None]
  - DRUG WITHDRAWAL SYNDROME [None]
  - GAIT DISTURBANCE [None]
  - MUSCULAR WEAKNESS [None]
  - MUSCULOSKELETAL STIFFNESS [None]
